FAERS Safety Report 23839602 (Version 2)
Quarter: 2025Q1

REPORT INFORMATION
  Report Type: Spontaneous
  Country: MX (occurrence: MX)
  Receive Date: 20240510
  Receipt Date: 20250108
  Transmission Date: 20250408
  Serious: Yes (Hospitalization, Other)
  Sender: NOVO NORDISK
  Company Number: MX-NOVOPROD-1216630

PATIENT
  Age: 28 Year
  Sex: Female
  Weight: 57 kg

DRUGS (1)
  1. TRESIBA [Suspect]
     Active Substance: INSULIN DEGLUDEC
     Indication: Type 1 diabetes mellitus
     Dosage: 28 IU, QD
     Route: 058

REACTIONS (8)
  - Abdominal distension [Unknown]
  - Dyspnoea [Unknown]
  - Blood glucose increased [Unknown]
  - Device breakage [Unknown]
  - Device failure [Unknown]
  - Blood glucose increased [Unknown]
  - Injection site rash [Unknown]
  - Wrong technique in product usage process [Unknown]

NARRATIVE: CASE EVENT DATE: 20230101
